FAERS Safety Report 9983016 (Version 1)
Quarter: 2014Q1

REPORT INFORMATION
  Report Type: Report from Study
  Country: US (occurrence: US)
  Receive Date: 20140307
  Receipt Date: 20140307
  Transmission Date: 20141002
  Serious: No
  Sender: FDA-Public Use
  Company Number: US-ABBVIE-13P-163-1177741-00

PATIENT
  Age: 42 Year
  Sex: Male

DRUGS (3)
  1. HUMIRA [Suspect]
     Indication: PSORIASIS
     Dates: start: 201304
  2. HEPATITIS B VACCINE [Suspect]
     Indication: ANTIVIRAL PROPHYLAXIS
     Dates: start: 201310
  3. INFLUENZA VACCINE [Suspect]
     Indication: ANTIVIRAL PROPHYLAXIS
     Dates: start: 201310

REACTIONS (1)
  - Psoriasis [Recovering/Resolving]
